FAERS Safety Report 7725431-3 (Version None)
Quarter: 2011Q3

REPORT INFORMATION
  Report Type: 
  Country: None (occurrence: None)
  Receive Date: 20110902
  Receipt Date: 20110831
  Transmission Date: 20111222
  Serious: No
  Sender: FDA-Public Use
  Company Number: US-PFIZER INC-2011203876

PATIENT
  Sex: Male

DRUGS (1)
  1. LYRICA [Suspect]
     Indication: SLEEP DISORDER
     Dosage: UNK
     Dates: start: 20110830

REACTIONS (1)
  - DRUG INEFFECTIVE [None]
